FAERS Safety Report 21346911 (Version 1)
Quarter: 2022Q3

REPORT INFORMATION
  Report Type: Spontaneous
  Country: US (occurrence: None)
  Receive Date: 20220916
  Receipt Date: 20220916
  Transmission Date: 20221027
  Serious: No
  Sender: FDA-Public Use
  Company Number: None

PATIENT
  Sex: Female

DRUGS (1)
  1. HUMIRA [Suspect]
     Active Substance: ADALIMUMAB
     Indication: Colitis
     Dosage: 40MG EVERY 7 DAYS SUBCUTANEOUS
     Route: 058
     Dates: start: 20220331

REACTIONS (6)
  - Abortion spontaneous [None]
  - Muscle spasms [None]
  - Vaginal haemorrhage [None]
  - Cyst rupture [None]
  - Human chorionic gonadotropin decreased [None]
  - Exposure during pregnancy [None]
